FAERS Safety Report 6976673-6 (Version None)
Quarter: 2010Q3

REPORT INFORMATION
  Report Type: 
  Country: None (occurrence: None)
  Receive Date: 20100910
  Receipt Date: 20090504
  Transmission Date: 20110219
  Serious: No
  Sender: FDA-Public Use
  Company Number: US-WYE-H09219709

PATIENT
  Age: 78 Year
  Sex: Female

DRUGS (14)
  1. PRISTIQ [Suspect]
     Indication: DEPRESSION
     Route: 048
     Dates: start: 20090101
  2. SINEMET CR [Interacting]
  3. SYNTHROID [Concomitant]
  4. PRILOSEC [Concomitant]
  5. CALCIUM PHOSPHATE/CALCIUM SODIUM LACTATE/ERGOCALCIFEROL [Concomitant]
  6. COUMADIN [Concomitant]
  7. LASIX [Concomitant]
  8. TRICOR [Concomitant]
  9. COLACE [Concomitant]
  10. TOCOPHEROL CONCENTRATE CAP [Concomitant]
  11. GABAPENTIN [Concomitant]
  12. XANAX [Concomitant]
  13. SINEMET [Interacting]
  14. CENTRUM SILVER [Concomitant]

REACTIONS (7)
  - BACK PAIN [None]
  - DRUG INEFFECTIVE [None]
  - DRUG INTERACTION [None]
  - FATIGUE [None]
  - INSOMNIA [None]
  - NECK PAIN [None]
  - PAIN IN EXTREMITY [None]
